FAERS Safety Report 7621775-4 (Version None)
Quarter: 2011Q3

REPORT INFORMATION
  Report Type: 
  Country: None (occurrence: None)
  Receive Date: 20110719
  Receipt Date: 20110706
  Transmission Date: 20111222
  Serious: Yes (Other)
  Sender: FDA-Public Use
  Company Number: US-MYLANLABS-2011S1014259

PATIENT
  Age: 82 Year
  Sex: Male

DRUGS (2)
  1. ISOTRETINOIN [Suspect]
     Indication: MALIGNANT MELANOMA
     Dosage: 10 MG/DAY
     Route: 048
  2. WARFARIN SODIUM [Interacting]
     Dosage: 4 MG/DAY
     Route: 065

REACTIONS (9)
  - INTERNATIONAL NORMALISED RATIO INCREASED [None]
  - PERSONALITY CHANGE [None]
  - PRURITUS [None]
  - DYSPNOEA [None]
  - OEDEMA PERIPHERAL [None]
  - LIP DRY [None]
  - DRUG INTERACTION [None]
  - DRY EYE [None]
  - EPISTAXIS [None]
